FAERS Safety Report 9395360 (Version 1)
Quarter: 2013Q3

REPORT INFORMATION
  Report Type: Spontaneous
  Country: US (occurrence: US)
  Receive Date: 20130711
  Receipt Date: 20130711
  Transmission Date: 20140515
  Serious: No
  Sender: FDA-Public Use
  Company Number: US-ASTELLAS-2013US005954

PATIENT
  Age: 69 Year
  Sex: Female

DRUGS (3)
  1. MYRBETRIQ [Suspect]
     Indication: CYSTITIS INTERSTITIAL
     Dosage: 25 MG, UID/QD
     Route: 048
     Dates: start: 20130518
  2. MYRBETRIQ [Interacting]
     Dosage: 25 MG, UID/QD
     Route: 048
  3. ELAVIL /00002202/ [Interacting]
     Indication: PRODUCT USED FOR UNKNOWN INDICATION
     Dosage: UNK
     Route: 065

REACTIONS (5)
  - Off label use [Unknown]
  - Drug interaction [Unknown]
  - Dry eye [Unknown]
  - Fatigue [Unknown]
  - Insomnia [Unknown]
